FAERS Safety Report 7939456-6 (Version None)
Quarter: 2011Q4

REPORT INFORMATION
  Report Type: 
  Country: None (occurrence: None)
  Receive Date: 20111125
  Receipt Date: 20111115
  Transmission Date: 20120403
  Serious: Yes (Other)
  Sender: FDA-Public Use
  Company Number: AU-ROCHE-1013451

PATIENT
  Sex: Female

DRUGS (6)
  1. PRAVACHOL [Concomitant]
  2. VITAMIN D [Concomitant]
  3. ACTEMRA [Suspect]
     Indication: RHEUMATOID ARTHRITIS
     Dates: start: 20101006
  4. GLUCOSAMINE [Concomitant]
  5. EFFEXOR [Concomitant]
  6. CALCIUM [Concomitant]

REACTIONS (1)
  - GASTROINTESTINAL DISORDER [None]
